FAERS Safety Report 26199403 (Version 1)
Quarter: 2025Q4

REPORT INFORMATION
  Report Type: Spontaneous
  Country: EU (occurrence: EU)
  Receive Date: 20251225
  Receipt Date: 20251225
  Transmission Date: 20260118
  Serious: Yes (Other)
  Sender: ROCHE
  Company Number: None

PATIENT
  Age: 14 Year
  Sex: Male

DRUGS (6)
  1. MYCOPHENOLATE MOFETIL [Suspect]
     Active Substance: MYCOPHENOLATE MOFETIL
     Indication: Hodgkin^s disease refractory
     Dosage: 7.5 MG/KG, Q12H
  2. TACROLIMUS [Suspect]
     Active Substance: TACROLIMUS
     Indication: Hodgkin^s disease refractory
     Dosage: 1 MG, QD
  3. FLUDARABINE PHOSPHATE [Suspect]
     Active Substance: FLUDARABINE PHOSPHATE
     Indication: Hodgkin^s disease refractory
     Dosage: DAY-6 TO -2) WITH PTCY-BASED GVHD PROPHYLAXIS
  4. CYCLOPHOSPHAMIDE [Suspect]
     Active Substance: CYCLOPHOSPHAMIDE
     Indication: Hodgkin^s disease refractory
     Dosage: 50 MG/KG ON DAYS + 3 AND + 4,
  5. PEMBROLIZUMAB [Concomitant]
     Active Substance: PEMBROLIZUMAB
  6. BENDAMUSTINE [Concomitant]
     Active Substance: BENDAMUSTINE

REACTIONS (6)
  - Acute graft versus host disease in skin [Unknown]
  - Rash pruritic [Unknown]
  - Rash maculo-papular [Unknown]
  - Acute graft versus host disease in liver [Unknown]
  - Clostridium difficile infection [Unknown]
  - BK virus infection [Unknown]
